FAERS Safety Report 6419776-7 (Version None)
Quarter: 2009Q4

REPORT INFORMATION
  Report Type: 
  Country: None (occurrence: None)
  Receive Date: 20091016
  Receipt Date: 20090714
  Transmission Date: 20100525
  Serious: Yes (Hospitalization, Disabling)
  Sender: FDA-Public Use
  Company Number: AMI0013339

PATIENT
  Age: 81 Year
  Sex: Female

DRUGS (3)
  1. TIMOLOL 0.5% [Suspect]
     Dosage: APPROX. 1 WEEK
  2. BRIMONIDINE [Concomitant]
  3. INTRAVENOUS MANITOL [Concomitant]

REACTIONS (1)
  - DRUG INEFFECTIVE [None]
